FAERS Safety Report 10775917 (Version 1)
Quarter: 2015Q1

REPORT INFORMATION
  Report Type: Spontaneous
  Country: TR (occurrence: TR)
  Receive Date: 20150209
  Receipt Date: 20150209
  Transmission Date: 20150721
  Serious: Yes (Other)
  Sender: FDA-Public Use
  Company Number: TR-BAYER-2015-014232

PATIENT
  Sex: Female
  Weight: 1.59 kg

DRUGS (4)
  1. BETAMETHASONE [Concomitant]
     Active Substance: BETAMETHASONE
     Route: 064
  2. BETAMETHASONE [Concomitant]
     Active Substance: BETAMETHASONE
     Route: 064
  3. NIFEDIPINE. [Suspect]
     Active Substance: NIFEDIPINE
     Route: 064
  4. NIFEDIPINE. [Suspect]
     Active Substance: NIFEDIPINE
     Route: 064

REACTIONS (3)
  - Low birth weight baby [None]
  - Premature baby [None]
  - Foetal exposure during pregnancy [None]
